FAERS Safety Report 7285109-X (Version None)
Quarter: 2011Q1

REPORT INFORMATION
  Report Type: 
  Country: None (occurrence: None)
  Receive Date: 20110204
  Receipt Date: 20110204
  Transmission Date: 20110831
  Serious: Yes (Disabling)
  Sender: FDA-Public Use
  Company Number: None

PATIENT
  Sex: Female
  Weight: 78.4723 kg

DRUGS (1)
  1. SUBOXE, 8MG/ 2MG, RECKITT BENCKISER [Suspect]
     Indication: DRUG WITHDRAWAL SYNDROME
     Dosage: 8MG/2MG 3X'S DAILY SUBLINGUAL
     Route: 060
     Dates: start: 20090101

REACTIONS (7)
  - HEADACHE [None]
  - DRUG INEFFECTIVE [None]
  - DENTAL CARIES [None]
  - TOOTH FRACTURE [None]
  - DRY MOUTH [None]
  - MOOD SWINGS [None]
  - DEPENDENCE [None]
